FAERS Safety Report 5019213-3 (Version None)
Quarter: 2006Q2

REPORT INFORMATION
  Report Type: 
  Country: None (occurrence: None)
  Receive Date: 20060531
  Receipt Date: 20060515
  Transmission Date: 20061013
  Serious: Yes (Hospitalization)
  Sender: FDA-Public Use
  Company Number: PAR_0632_2006

PATIENT
  Age: 15 Year
  Sex: Female

DRUGS (2)
  1. DOXYCYCLINE [Suspect]
     Indication: ACNE
     Dosage: 100 MG QAM PO
     Route: 048
  2. GESTODENE-ETHINYLOESTRADIOL [Concomitant]

REACTIONS (7)
  - ASTHENIA [None]
  - DYSPEPSIA [None]
  - DYSPHAGIA [None]
  - OESOPHAGEAL ULCER [None]
  - OESOPHAGITIS [None]
  - THERAPY NON-RESPONDER [None]
  - WEIGHT DECREASED [None]
